FAERS Safety Report 20731758 (Version 1)
Quarter: 2022Q2

REPORT INFORMATION
  Report Type: Spontaneous
  Country: PT (occurrence: PT)
  Receive Date: 20220420
  Receipt Date: 20220420
  Transmission Date: 20220721
  Serious: Yes (Other)
  Sender: FDA-Public Use
  Company Number: PT-BRISTOL-MYERS SQUIBB COMPANY-2022-022671

PATIENT
  Age: 77 Year
  Sex: Female

DRUGS (2)
  1. AZACITIDINE [Suspect]
     Active Substance: AZACITIDINE
     Indication: Acute myeloid leukaemia
     Dosage: 4 CYCLES
     Route: 058
  2. VENETOCLAX [Suspect]
     Active Substance: VENETOCLAX
     Indication: Acute myeloid leukaemia
     Dosage: AT A DOSE OF 100 MG ON D1, 200 MG ON D2 AND 400 MG FROM D3 TO D28, IN CYCLE 1, AND THEN CONTINUOUS,
     Route: 065

REACTIONS (3)
  - Urinary tract infection bacterial [Unknown]
  - Diverticulitis [Unknown]
  - Abdominal abscess [Unknown]
